FAERS Safety Report 15283902 (Version 2)
Quarter: 2018Q4

REPORT INFORMATION
  Report Type: Spontaneous
  Country: GB (occurrence: GB)
  Receive Date: 20180816
  Receipt Date: 20181011
  Transmission Date: 20190204
  Serious: Yes (Disabling, Other)
  Sender: FDA-Public Use
  Company Number: PHHY2018GB070628

PATIENT
  Age: 46 Year
  Sex: Female
  Weight: 104 kg

DRUGS (4)
  1. COSENTYX [Suspect]
     Active Substance: SECUKINUMAB
     Indication: PRODUCT USED FOR UNKNOWN INDICATION
     Dosage: UNK, QMO
     Route: 058
  2. RANITIDINE. [Concomitant]
     Active Substance: RANITIDINE
     Indication: PRODUCT USED FOR UNKNOWN INDICATION
     Dosage: UNK UNK, QD
     Route: 065
  3. SANDOSTATIN [Suspect]
     Active Substance: OCTREOTIDE ACETATE
     Indication: PRODUCT USED FOR UNKNOWN INDICATION
     Route: 065
  4. NAPROXEN. [Concomitant]
     Active Substance: NAPROXEN
     Indication: PRODUCT USED FOR UNKNOWN INDICATION
     Dosage: UNK UNK, PRN
     Route: 048

REACTIONS (2)
  - Multiple sclerosis relapse [Unknown]
  - Central nervous system lesion [Not Recovered/Not Resolved]

NARRATIVE: CASE EVENT DATE: 201804
